FAERS Safety Report 19837662 (Version 1)
Quarter: 2021Q3

REPORT INFORMATION
  Report Type: Spontaneous
  Country: TR (occurrence: TR)
  Receive Date: 20210916
  Receipt Date: 20210916
  Transmission Date: 20211014
  Serious: Yes (Death, Life-Threatening, Hospitalization, Other)
  Sender: FDA-Public Use
  Company Number: TR-LUPIN PHARMACEUTICALS INC.-2021-17419

PATIENT
  Age: 17 Year
  Sex: Male

DRUGS (4)
  1. HEPARIN [Concomitant]
     Active Substance: HEPARIN SODIUM
     Indication: ANTICOAGULANT THERAPY
     Dosage: 10 INTERNATIONAL UNIT/KILOGRAM
     Route: 042
  2. VITAMIN K [Concomitant]
     Active Substance: PHYTONADIONE
     Indication: PRODUCT USED FOR UNKNOWN INDICATION
     Dosage: 10 MILLIGRAM
     Route: 065
  3. METFORMIN [Suspect]
     Active Substance: METFORMIN HYDROCHLORIDE
     Indication: PRODUCT USED FOR UNKNOWN INDICATION
     Dosage: 500 MILLIGRAM (INGESTED MANY PILLS)
     Route: 048
  4. INSULIN [Concomitant]
     Active Substance: INSULIN NOS
     Indication: TYPE 1 DIABETES MELLITUS
     Dosage: UNK
     Route: 065

REACTIONS (14)
  - Tachycardia [Unknown]
  - Hypertension [Unknown]
  - Toxicity to various agents [Unknown]
  - Lactic acidosis [Unknown]
  - Intentional product misuse [Unknown]
  - Cardiac arrest [Unknown]
  - Thrombosis [Unknown]
  - Bradycardia [Unknown]
  - Rhabdomyolysis [Unknown]
  - Hypotension [Unknown]
  - Overdose [Unknown]
  - Sepsis [Fatal]
  - Hyperkalaemia [Unknown]
  - Autonomic nervous system imbalance [Unknown]
